FAERS Safety Report 12443148 (Version 3)
Quarter: 2016Q3

REPORT INFORMATION
  Report Type: Spontaneous
  Country: US (occurrence: US)
  Receive Date: 20160607
  Receipt Date: 20160829
  Transmission Date: 20161109
  Serious: Yes (Hospitalization, Other)
  Sender: FDA-Public Use
  Company Number: US-BAYER-2016-103269

PATIENT
  Age: 18 Year
  Sex: Female
  Weight: 53.61 kg

DRUGS (4)
  1. DEPO-PROVERA [Concomitant]
     Active Substance: MEDROXYPROGESTERONE ACETATE
  2. ALBUTEROL. [Concomitant]
     Active Substance: ALBUTEROL
     Indication: ASTHMA
  3. MIRENA [Suspect]
     Active Substance: LEVONORGESTREL
     Indication: CONTRACEPTION
     Dosage: 20 MCG/24HR, CONT
     Route: 015
     Dates: start: 20120814, end: 20131122
  4. PRENATAL VITAMINS [VIT C,B5,B12,D2,B3,B6,RETINOL PALMIT,B2,B1 MONO [Concomitant]

REACTIONS (8)
  - Uterine perforation [Recovered/Resolved]
  - Device difficult to use [None]
  - Device issue [None]
  - Pregnancy with contraceptive device [None]
  - Procedural pain [Recovered/Resolved]
  - Drug ineffective [None]
  - Gastrointestinal injury [None]
  - Abortion spontaneous [None]

NARRATIVE: CASE EVENT DATE: 20130629
